FAERS Safety Report 8904162 (Version 1)
Quarter: 2012Q4

REPORT INFORMATION
  Report Type: 
  Country: US (occurrence: US)
  Receive Date: 20121113
  Receipt Date: 20121113
  Transmission Date: 20130627
  Serious: Yes (Other)
  Sender: FDA-Public Use
  Company Number: US-CELGENEUS-163-21880-12110328

PATIENT

DRUGS (2)
  1. REVLIMID [Suspect]
     Indication: MYELOMA
     Dosage: 10 Milligram
     Route: 048
  2. ALPHA-GALCER-LOADED-MATURE-MONOCYTE-DERIVED DCS [Concomitant]
     Indication: MYELOMA
     Dosage: 10 millions
     Route: 041

REACTIONS (2)
  - Extrasystoles [Unknown]
  - Urticaria [Unknown]
